FAERS Safety Report 20815376 (Version 1)
Quarter: 2022Q2

REPORT INFORMATION
  Report Type: Spontaneous
  Country: FR (occurrence: FR)
  Receive Date: 20220511
  Receipt Date: 20220511
  Transmission Date: 20220721
  Serious: Yes (Hospitalization)
  Sender: FDA-Public Use
  Company Number: FR-VERTEX PHARMACEUTICALS-2022-007297

PATIENT

DRUGS (1)
  1. ORKAMBI [Suspect]
     Active Substance: IVACAFTOR\LUMACAFTOR
     Indication: Cystic fibrosis
     Dosage: UNK
     Route: 048
     Dates: start: 202010

REACTIONS (4)
  - Cystic fibrosis respiratory infection suppression [Unknown]
  - Enteral nutrition [Unknown]
  - Dyspnoea at rest [Not Recovered/Not Resolved]
  - Growth retardation [Not Recovered/Not Resolved]
